FAERS Safety Report 16723261 (Version 1)
Quarter: 2019Q3

REPORT INFORMATION
  Report Type: Spontaneous
  Country: DE (occurrence: DE)
  Receive Date: 20190821
  Receipt Date: 20190821
  Transmission Date: 20191005
  Serious: Yes (Other)
  Sender: FDA-Public Use
  Company Number: DE-ABBVIE-19K-062-2891659-00

PATIENT
  Age: 55 Year
  Sex: Male

DRUGS (1)
  1. HUMIRA [Suspect]
     Active Substance: ADALIMUMAB
     Indication: COLITIS ULCERATIVE
     Route: 058
     Dates: start: 201901, end: 201908

REACTIONS (4)
  - Haemorrhage [Unknown]
  - Colitis ulcerative [Unknown]
  - Ulcer [Unknown]
  - Pain [Unknown]

NARRATIVE: CASE EVENT DATE: 201907
